FAERS Safety Report 23760644 (Version 1)
Quarter: 2024Q2

REPORT INFORMATION
  Report Type: Spontaneous
  Country: US (occurrence: None)
  Receive Date: 20240419
  Receipt Date: 20240419
  Transmission Date: 20240716
  Serious: Yes (Other)
  Sender: FDA-Public Use
  Company Number: 2024A089426

PATIENT
  Sex: Female

DRUGS (1)
  1. CRESTOR [Suspect]
     Active Substance: ROSUVASTATIN CALCIUM
     Route: 048

REACTIONS (6)
  - Intraductal papillary-mucinous carcinoma of pancreas [Unknown]
  - Arrhythmia [Unknown]
  - Low density lipoprotein increased [Unknown]
  - Spinal stenosis [Unknown]
  - Osteoporosis [Unknown]
  - Osteopenia [Unknown]
